FAERS Safety Report 8788198 (Version 1)
Quarter: 2012Q4

REPORT INFORMATION
  Report Type: 
  Country: US (occurrence: US)
  Receive Date: 20120914
  Receipt Date: 20120914
  Transmission Date: 20130627
  Serious: Yes (Hospitalization)
  Sender: FDA-Public Use
  Company Number: US-VERTEX PHARMACEUTICAL INC.-AE-2012-010792

PATIENT

DRUGS (11)
  1. INCIVEK [Suspect]
     Indication: HEPATITIS C
     Route: 048
     Dates: start: 20120630, end: 20120718
  2. RIBAVIRIN [Concomitant]
     Indication: HEPATITIS C
     Route: 048
     Dates: start: 20120630, end: 20120718
  3. PEGASYS [Concomitant]
     Indication: HEPATITIS C
     Route: 058
     Dates: start: 20120630, end: 20120712
  4. NEXIUM [Concomitant]
  5. RISPERDAL [Concomitant]
  6. PROZAC [Concomitant]
  7. ELAVIL [Concomitant]
  8. TAPAZOLE [Concomitant]
  9. NICODERM [Concomitant]
  10. METFORMIN [Concomitant]
  11. TRAMADOL [Concomitant]

REACTIONS (1)
  - Anaemia [Unknown]
